FAERS Safety Report 5584013-2 (Version None)
Quarter: 2008Q1

REPORT INFORMATION
  Report Type: 
  Country: None (occurrence: None)
  Receive Date: 20080104
  Receipt Date: 20080104
  Transmission Date: 20080703
  Serious: Yes (Hospitalization)
  Sender: FDA-Public Use
  Company Number: None

PATIENT
  Age: 68 Year
  Sex: Female
  Weight: 73.9363 kg

DRUGS (14)
  1. ALIMTA [Suspect]
     Indication: NEOPLASM MALIGNANT
     Dosage: Q21DAYS
     Dates: end: 20071220
  2. ERBITUX [Suspect]
     Dosage: WEEKLY
     Dates: end: 20071220
  3. RT [Suspect]
     Dates: start: 20071128, end: 20071227
  4. METOPROLOL [Concomitant]
  5. LIPITOR [Concomitant]
  6. DIGOXIN [Concomitant]
  7. SYNTHROID [Concomitant]
  8. ROXICET [Concomitant]
  9. COUMADIN [Concomitant]
  10. FOLIC ACID [Concomitant]
  11. MAGNESIUM OXIDE [Concomitant]
  12. DECADRON [Concomitant]
  13. MINOCYCLINE HCL [Concomitant]
  14. CLEOCIN HYDROCHLORIDE [Concomitant]

REACTIONS (5)
  - INTERNATIONAL NORMALISED RATIO INCREASED [None]
  - MUCOSAL INFLAMMATION [None]
  - NEUTROPHIL COUNT ABNORMAL [None]
  - RASH [None]
  - WHITE BLOOD CELL COUNT ABNORMAL [None]
